FAERS Safety Report 6072569-5 (Version None)
Quarter: 2009Q1

REPORT INFORMATION
  Report Type: 
  Country: None (occurrence: None)
  Receive Date: 20090210
  Receipt Date: 20090130
  Transmission Date: 20090719
  Serious: Yes (Other)
  Sender: FDA-Public Use
  Company Number: DE-WYE-H08071009

PATIENT
  Sex: Female

DRUGS (3)
  1. PANTOPRAZOLE [Suspect]
     Dosage: ^2 DOSAGE FORMS^
     Route: 048
     Dates: start: 20070401
  2. AMOXICILLIN TRIHYDRATE [Suspect]
     Dosage: ^2 DOSAGE FORMS^
     Route: 048
     Dates: start: 20070401
  3. CLARITHROMYCIN [Suspect]
     Dosage: ^2 DOSAGE FORMS^
     Route: 048
     Dates: start: 20070401

REACTIONS (6)
  - ASTHENIA [None]
  - DEPRESSION [None]
  - GENERAL PHYSICAL CONDITION ABNORMAL [None]
  - PANIC ATTACK [None]
  - SUICIDAL IDEATION [None]
  - TREMOR [None]
